FAERS Safety Report 5782914-3 (Version None)
Quarter: 2008Q2

REPORT INFORMATION
  Report Type: 
  Country: None (occurrence: None)
  Receive Date: 20080624
  Receipt Date: 20080617
  Transmission Date: 20081010
  Serious: Yes (Other)
  Sender: FDA-Public Use
  Company Number: US-MERCK-0706USA03755

PATIENT
  Age: 57 Year
  Sex: Male

DRUGS (6)
  1. FOSAMAX [Suspect]
     Indication: OSTEITIS DEFORMANS
     Route: 048
     Dates: start: 20050210, end: 20060901
  2. FOSAMAX [Suspect]
     Indication: OSTEOARTHRITIS
     Route: 048
     Dates: start: 20050210, end: 20060901
  3. ATENOLOL [Concomitant]
     Indication: HYPERTENSION
     Route: 065
     Dates: start: 19900101
  4. DARVOCET-N 100 [Concomitant]
     Indication: ARTHRITIS
     Route: 065
     Dates: start: 19900101
  5. DARVOCET-N 100 [Concomitant]
     Indication: BACK PAIN
     Route: 065
     Dates: start: 19900101
  6. [THERAPY UNSPECIFIED] [Concomitant]
     Indication: BLOOD CHOLESTEROL INCREASED
     Route: 065
     Dates: start: 19960101

REACTIONS (11)
  - CARDIOMEGALY [None]
  - DIZZINESS [None]
  - IRRITABLE BOWEL SYNDROME [None]
  - MACROCYTOSIS [None]
  - MENISCUS LESION [None]
  - OSTEOLYSIS [None]
  - PARAESTHESIA [None]
  - PERIODONTITIS [None]
  - PULMONARY FIBROSIS [None]
  - RIB FRACTURE [None]
  - TOOTH ABSCESS [None]
